FAERS Safety Report 13431873 (Version 2)
Quarter: 2017Q3

REPORT INFORMATION
  Report Type: Spontaneous
  Country: US (occurrence: US)
  Receive Date: 20170412
  Receipt Date: 20170707
  Transmission Date: 20171127
  Serious: Yes (Hospitalization)
  Sender: FDA-Public Use
  Company Number: US-JNJFOC-20170307565

PATIENT
  Age: 32 Year
  Sex: Female

DRUGS (4)
  1. XARELTO [Suspect]
     Active Substance: RIVAROXABAN
     Indication: PULMONARY EMBOLISM
     Dosage: 15MG 2X DAILY THEN 20MG DAILY; REDUCED BACK TO 15MG
     Route: 048
     Dates: start: 20131024, end: 20150310
  2. XARELTO [Suspect]
     Active Substance: RIVAROXABAN
     Indication: DEEP VEIN THROMBOSIS
     Dosage: 15MG 2X DAILY THEN 20MG DAILY; REDUCED BACK TO 15MG
     Route: 048
     Dates: start: 20131024, end: 20150310
  3. XARELTO [Suspect]
     Active Substance: RIVAROXABAN
     Indication: DEEP VEIN THROMBOSIS
     Dosage: 15MG 2X DAILY THEN 20MG DAILY; REDUCED BACK TO 15MG
     Route: 048
  4. XARELTO [Suspect]
     Active Substance: RIVAROXABAN
     Indication: PULMONARY EMBOLISM
     Dosage: 15MG 2X DAILY THEN 20MG DAILY; REDUCED BACK TO 15MG
     Route: 048

REACTIONS (1)
  - Menorrhagia [Unknown]

NARRATIVE: CASE EVENT DATE: 20150222
